FAERS Safety Report 7518876-8 (Version None)
Quarter: 2011Q2

REPORT INFORMATION
  Report Type: 
  Country: None (occurrence: None)
  Receive Date: 20110602
  Receipt Date: 20110524
  Transmission Date: 20111010
  Serious: Yes (Hospitalization, Other)
  Sender: FDA-Public Use
  Company Number: CA-US-EMD SERONO, INC.-7060774

PATIENT
  Sex: Female

DRUGS (7)
  1. REBIF [Suspect]
     Indication: RELAPSING-REMITTING MULTIPLE SCLEROSIS
     Dates: start: 20050317
  2. EURO-DOCOSATE-C  (PRESUMABLY DOCUSATE C) [Concomitant]
  3. HYDROCHLOROTHIAZIDE [Concomitant]
  4. VALIUM [Concomitant]
  5. PLEXARIL (PRESUMABLY FLEXERIL) [Concomitant]
  6. BIZACODIL-ODUM (PRESUMABLY BISACODYLUM) [Concomitant]
  7. HYDROMORPHONE HCL [Concomitant]
     Indication: PAIN

REACTIONS (7)
  - ANXIETY [None]
  - ARRHYTHMIA [None]
  - WEIGHT INCREASED [None]
  - ANGINA PECTORIS [None]
  - CEREBROVASCULAR ACCIDENT [None]
  - DYSPNOEA [None]
  - CHEST PAIN [None]
